FAERS Safety Report 7505735-X (Version None)
Quarter: 2011Q2

REPORT INFORMATION
  Report Type: 
  Country: None (occurrence: None)
  Receive Date: 20110404
  Receipt Date: 20101122
  Transmission Date: 20111010
  Serious: Yes (Other)
  Sender: FDA-Public Use
  Company Number: 011995

PATIENT

DRUGS (4)
  1. BUSULFEX [Suspect]
     Indication: STEM CELL TRANSPLANT
     Dosage: INTRAVENOUS
     Route: 042
  2. MYCOPHENOLATE MOFETIL [Concomitant]
  3. CYCLOSPORINE [Concomitant]
  4. FLUDARABINE (FLUDARABINE) [Concomitant]

REACTIONS (2)
  - CHRONIC GRAFT VERSUS HOST DISEASE [None]
  - ACUTE GRAFT VERSUS HOST DISEASE [None]
